FAERS Safety Report 17525733 (Version 3)
Quarter: 2022Q4

REPORT INFORMATION
  Report Type: Spontaneous
  Country: US (occurrence: US)
  Receive Date: 20200311
  Receipt Date: 20221003
  Transmission Date: 20230113
  Serious: No
  Sender: FDA-Public Use
  Company Number: US-DRREDDYS-USA/USA/20/0120297

PATIENT
  Age: 48 Year
  Sex: Female
  Weight: 90 kg

DRUGS (8)
  1. SUMATRIPTAN [Suspect]
     Active Substance: SUMATRIPTAN
     Indication: Migraine
     Dosage: 6 MG/0.5 ML INJECTION
     Route: 058
     Dates: start: 2020
  2. SUMATRIPTAN [Suspect]
     Active Substance: SUMATRIPTAN
     Dosage: 6 MG/0.5 ML INJECTION
     Route: 058
  3. SUMATRIPTAN [Suspect]
     Active Substance: SUMATRIPTAN
     Dosage: 6 MG/0.5 ML
     Route: 058
  4. SUMATRIPTAN [Suspect]
     Active Substance: SUMATRIPTAN
     Dosage: 6 MG/0.5 ML
     Route: 058
  5. LYRICA [Concomitant]
     Active Substance: PREGABALIN
     Indication: Fibromyalgia
     Route: 065
  6. FLEXERIL [Concomitant]
     Active Substance: CYCLOBENZAPRINE HYDROCHLORIDE
     Indication: Product used for unknown indication
     Route: 065
  7. LEXAPRO [Concomitant]
     Active Substance: ESCITALOPRAM OXALATE
     Indication: Depression
  8. LEXAPRO [Concomitant]
     Active Substance: ESCITALOPRAM OXALATE
     Indication: Anxiety

REACTIONS (2)
  - Product dose omission issue [Unknown]
  - Product quality issue [Unknown]
